FAERS Safety Report 7583958-1 (Version None)
Quarter: 2011Q2

REPORT INFORMATION
  Report Type: 
  Country: None (occurrence: None)
  Receive Date: 20110628
  Receipt Date: 20110628
  Transmission Date: 20111010
  Serious: Yes (Other)
  Sender: FDA-Public Use
  Company Number: None

PATIENT

DRUGS (2)
  1. CIPRO [Suspect]
     Indication: PSEUDOMONAS INFECTION
     Dosage: 500 MG TWICE DAILY ORAL
     Route: 048
     Dates: start: 20080101, end: 20101101
  2. AUGMENTIN (CURAM) DUO FORTE [Concomitant]

REACTIONS (3)
  - BALANCE DISORDER [None]
  - FEELING ABNORMAL [None]
  - HYPOAESTHESIA [None]
